FAERS Safety Report 4965449-7 (Version None)
Quarter: 2006Q2

REPORT INFORMATION
  Report Type: 
  Country: None (occurrence: None)
  Receive Date: 20060406
  Receipt Date: 20060329
  Transmission Date: 20061013
  Serious: Yes (Other)
  Sender: FDA-Public Use
  Company Number: CN-MERCK-0603CHN00031

PATIENT
  Age: 51 Year
  Sex: Male

DRUGS (4)
  1. AMPHOTERICIN B [Concomitant]
     Indication: SEPSIS
     Route: 051
     Dates: start: 20060323, end: 20060324
  2. CILASTATIN SODIUM AND IMIPENEM [Concomitant]
     Indication: SEPSIS
     Route: 051
     Dates: start: 20060314, end: 20060329
  3. CANCIDAS [Suspect]
     Indication: SEPSIS
     Route: 051
     Dates: start: 20060324, end: 20060324
  4. CANCIDAS [Suspect]
     Route: 051
     Dates: start: 20060325, end: 20060326

REACTIONS (7)
  - ALANINE AMINOTRANSFERASE INCREASED [None]
  - ASPARTATE AMINOTRANSFERASE INCREASED [None]
  - FLUSHING [None]
  - OEDEMA [None]
  - OLIGURIA [None]
  - RASH [None]
  - RESPIRATORY DISTRESS [None]
